APPROVED DRUG PRODUCT: LIDOCAINE
Active Ingredient: LIDOCAINE
Strength: 5%
Dosage Form/Route: OINTMENT;TOPICAL
Application: A217117 | Product #001 | TE Code: AT
Applicant: AUROBINDO PHARMA LTD
Approved: Jun 18, 2024 | RLD: No | RS: No | Type: RX